FAERS Safety Report 6376630-7 (Version None)
Quarter: 2009Q3

REPORT INFORMATION
  Report Type: 
  Country: None (occurrence: None)
  Receive Date: 20090925
  Receipt Date: 20090917
  Transmission Date: 20100115
  Serious: Yes (Hospitalization)
  Sender: FDA-Public Use
  Company Number: US-ABBOTT-09P-163-0596500-00

PATIENT
  Sex: Female

DRUGS (3)
  1. HUMIRA [Suspect]
     Indication: DRUG USE FOR UNKNOWN INDICATION
     Dates: start: 20080101
  2. AMPHETAMINE SALT COMBO (AMPHETAMINE W/ DEXTROAMPHETAMINE) [Suspect]
     Indication: DRUG USE FOR UNKNOWN INDICATION
     Route: 048
     Dates: start: 20010101
  3. ADDERALL 10 [Concomitant]
     Indication: DRUG USE FOR UNKNOWN INDICATION

REACTIONS (9)
  - ARTHRALGIA [None]
  - ARTHRITIS [None]
  - BLISTER [None]
  - HEADACHE [None]
  - HEART RATE DECREASED [None]
  - INFLUENZA [None]
  - LOCAL SWELLING [None]
  - PAIN [None]
  - PSORIASIS [None]
